FAERS Safety Report 6465405-6 (Version None)
Quarter: 2009Q4

REPORT INFORMATION
  Report Type: 
  Country: None (occurrence: None)
  Receive Date: 20091201
  Receipt Date: 20090817
  Transmission Date: 20100525
  Serious: No
  Sender: FDA-Public Use
  Company Number: US-AMGEN-KDL300228

PATIENT
  Sex: Female
  Weight: 86.7 kg

DRUGS (18)
  1. ENBREL [Suspect]
     Indication: RHEUMATOID ARTHRITIS
     Route: 058
     Dates: start: 20090301, end: 20090801
  2. METHOTREXATE [Concomitant]
     Route: 048
  3. VESICARE [Concomitant]
  4. DARVOCET-N 100 [Concomitant]
  5. NORVASC [Concomitant]
  6. HYZAAR [Concomitant]
  7. ATENOLOL [Concomitant]
  8. VITAMIN B COMPLEX CAP [Concomitant]
  9. MULTIPLE VITAMINS [Concomitant]
  10. LOVAZA [Concomitant]
  11. ALOE VERA [Concomitant]
  12. PREDNISONE TAB [Concomitant]
  13. FOLIC ACID [Concomitant]
  14. ACTONEL [Concomitant]
  15. CALCIUM CARBONATE/VITAMIN D [Concomitant]
  16. KLOR-CON [Concomitant]
  17. GLUCOSAMINE W/CHONDROITIN SULFATES [Concomitant]
  18. VICODIN [Concomitant]

REACTIONS (3)
  - ALOPECIA [None]
  - DRUG INEFFECTIVE [None]
  - HAIR GROWTH ABNORMAL [None]
